FAERS Safety Report 18905892 (Version 1)
Quarter: 2021Q1

REPORT INFORMATION
  Report Type: Spontaneous
  Country: US (occurrence: US)
  Receive Date: 20210217
  Receipt Date: 20210217
  Transmission Date: 20210420
  Serious: Yes (Hospitalization)
  Sender: FDA-Public Use
  Company Number: US-OTSUKA-2021_001938

PATIENT
  Age: 5 Year
  Sex: Female

DRUGS (26)
  1. BUSULFEX [Suspect]
     Active Substance: BUSULFAN
     Dosage: 81 MG,  (81 MG,1 IN 24 HR)
     Route: 065
     Dates: start: 20200121, end: 20200122
  2. BENADRYL [Concomitant]
     Active Substance: DIPHENHYDRAMINE HYDROCHLORIDE
     Indication: PROPHYLAXIS
  3. SODIUM CHLORIDE. [Concomitant]
     Active Substance: SODIUM CHLORIDE
     Indication: PROPHYLAXIS
     Dosage: UNK (AS REQUIRED)
     Route: 045
     Dates: start: 20200228
  4. PLERIXAFOR [Suspect]
     Active Substance: PLERIXAFOR
     Indication: HAEMATOPOIETIC STEM CELL MOBILISATION
     Dosage: 10 ?G/KG, QD (1 IN 1 DAY)
     Route: 042
     Dates: start: 20190802, end: 20190807
  5. ACETAMINOPHEN. [Concomitant]
     Active Substance: ACETAMINOPHEN
     Indication: PYREXIA
  6. REGLAN [Concomitant]
     Active Substance: METOCLOPRAMIDE HYDROCHLORIDE
     Indication: PRODUCT USED FOR UNKNOWN INDICATION
     Dosage: UNK
     Route: 065
  7. ZOFRAN [Concomitant]
     Active Substance: ONDANSETRON HYDROCHLORIDE
     Indication: PROPHYLAXIS OF NAUSEA AND VOMITING
     Dosage: 2 MG, AS REQUIRED (EVERY 8 HOURS)
     Route: 048
     Dates: start: 20200228
  8. ACETAMINOPHEN. [Concomitant]
     Active Substance: ACETAMINOPHEN
     Indication: PROPHYLAXIS
  9. ALBUTEROL. [Concomitant]
     Active Substance: ALBUTEROL
     Indication: COUGH
     Dosage: 2 DF, (EVERY 4 HOURS)
     Route: 055
     Dates: start: 20200309
  10. BUSULFEX [Suspect]
     Active Substance: BUSULFAN
     Dosage: 90 MG, 90 MG (90 MG,1 IN 24 HR)
     Route: 065
     Dates: start: 20200123, end: 20200123
  11. URSODIOL. [Concomitant]
     Active Substance: URSODIOL
     Indication: PROPHYLAXIS
     Dosage: UNK
     Route: 048
     Dates: start: 20200225
  12. URSODIOL. [Concomitant]
     Active Substance: URSODIOL
     Indication: VENOOCCLUSIVE DISEASE
     Dosage: 3.4 ML (1.7 ML,2 IN 1 D)
     Route: 048
     Dates: start: 20200309
  13. CEFEPIME [Concomitant]
     Active Substance: CEFEPIME HYDROCHLORIDE
     Indication: PYREXIA
     Dosage: UNK
     Route: 042
     Dates: start: 20200310, end: 20200312
  14. BENADRYL [Concomitant]
     Active Substance: DIPHENHYDRAMINE HYDROCHLORIDE
     Indication: PRURITUS
  15. SODIUM CHLORIDE. [Concomitant]
     Active Substance: SODIUM CHLORIDE
     Indication: EPISTAXIS
     Dosage: 2 DF, QD (2 SPRAYS 2 IN 1 D)
     Route: 045
     Dates: start: 20200302
  16. VITAMIN D [Concomitant]
     Active Substance: VITAMIN D NOS
     Indication: VITAMIN D DEFICIENCY
     Dosage: 1000 IU, (1 IN 1 D)
     Route: 048
     Dates: start: 20200226
  17. CLARITIN [Concomitant]
     Active Substance: LORATADINE
     Indication: COUGH
     Dosage: 5 MG, (1 IN 1 D)
     Route: 048
     Dates: start: 20200305
  18. BUSULFEX [Suspect]
     Active Substance: BUSULFAN
     Indication: BONE MARROW CONDITIONING REGIMEN
     Dosage: 48 MG,  (48 MG,1 IN 24 HR)
     Route: 065
     Dates: start: 20200124, end: 20200124
  19. PLERIXAFOR [Suspect]
     Active Substance: PLERIXAFOR
     Indication: THALASSAEMIA
  20. MIRALAX [Concomitant]
     Active Substance: POLYETHYLENE GLYCOL 3350
     Indication: CONSTIPATION PROPHYLAXIS
     Dosage: 8.5 MG, QD
     Route: 048
     Dates: start: 20200117
  21. ZOVIRAX [Concomitant]
     Active Substance: ACYCLOVIR
     Indication: INFECTION PROPHYLAXIS
     Dosage: UNK
     Route: 048
     Dates: start: 20200224
  22. FLUCONAZOLE. [Concomitant]
     Active Substance: FLUCONAZOLE
     Indication: INFECTION PROPHYLAXIS
     Dosage: UNK
     Route: 048
     Dates: start: 20200221, end: 20200320
  23. BENADRYL [Concomitant]
     Active Substance: DIPHENHYDRAMINE HYDROCHLORIDE
     Indication: PROPHYLAXIS OF NAUSEA AND VOMITING
     Dosage: 5 ML, UNK (EVERY 6 HOURS)
     Route: 048
     Dates: start: 20200228
  24. SODIUM CHLORIDE. [Concomitant]
     Active Substance: SODIUM CHLORIDE
     Indication: PROPHYLAXIS
     Dosage: 700 ML, (1 IN 1 D)
     Route: 042
     Dates: start: 20200309
  25. SODIUM CHLORIDE. [Concomitant]
     Active Substance: SODIUM CHLORIDE
     Indication: EPISTAXIS
  26. ACETAMINOPHEN. [Concomitant]
     Active Substance: ACETAMINOPHEN
     Indication: PAIN PROPHYLAXIS
     Dosage: 160 MG, (EVERY 6 HOURS)
     Route: 048
     Dates: start: 20200228

REACTIONS (1)
  - Pneumonia viral [Recovered/Resolved]

NARRATIVE: CASE EVENT DATE: 20200319
